FAERS Safety Report 7725161-8 (Version None)
Quarter: 2011Q3

REPORT INFORMATION
  Report Type: 
  Country: None (occurrence: None)
  Receive Date: 20110901
  Receipt Date: 20110822
  Transmission Date: 20111222
  Serious: Yes (Hospitalization)
  Sender: FDA-Public Use
  Company Number: JP-MERCK-1108USA03229

PATIENT
  Sex: Male

DRUGS (1)
  1. PROPECIA [Suspect]
     Dosage: 1 DAY
     Route: 048

REACTIONS (2)
  - DIARRHOEA [None]
  - HEPATIC FUNCTION ABNORMAL [None]
